FAERS Safety Report 13449805 (Version 1)
Quarter: 2017Q2

REPORT INFORMATION
  Report Type: Spontaneous
  Country: US (occurrence: US)
  Receive Date: 20170417
  Receipt Date: 20170417
  Transmission Date: 20170830
  Serious: Yes (Hospitalization)
  Sender: FDA-Public Use
  Company Number: US-BION-20160722

PATIENT
  Age: 80 Year
  Sex: Female
  Weight: 58.06 kg

DRUGS (4)
  1. DICYCLOMINE [Concomitant]
     Active Substance: DICYCLOMINE HYDROCHLORIDE
  2. BAYER ASPIRIN REGIMEN CHEWABLE LOW DOSE ASPIRIN ORANGE [Suspect]
     Active Substance: ASPIRIN
     Dosage: 1 DF, QD
  3. UNSPECIFIED MEDICATIONS [Concomitant]
     Active Substance: UNSPECIFIED INGREDIENT
  4. ALEVE [Suspect]
     Active Substance: NAPROXEN SODIUM
     Indication: ANALGESIC THERAPY
     Dosage: 1 / ONE TIME ONLY
     Route: 048

REACTIONS (9)
  - Gastric ulcer haemorrhage [Recovered/Resolved]
  - Anaemia [Recovered/Resolved]
  - Rectal haemorrhage [Recovered/Resolved]
  - Irritable bowel syndrome [Recovered/Resolved]
  - Haematemesis [Recovered/Resolved]
  - Haematuria [Recovered/Resolved]
  - Vomiting [Recovered/Resolved]
  - Product label issue [Unknown]
  - Labelled drug-drug interaction medication error [Recovered/Resolved]
